FAERS Safety Report 10072293 (Version 2)
Quarter: 2014Q2

REPORT INFORMATION
  Report Type: Spontaneous
  Country: US (occurrence: DE)
  Receive Date: 20140411
  Receipt Date: 20140502
  Transmission Date: 20141212
  Serious: Yes (Hospitalization)
  Sender: FDA-Public Use
  Company Number: 2014SP001918

PATIENT
  Age: 63 Year
  Sex: Female
  Weight: 90 kg

DRUGS (7)
  1. METHOTREXATE [Suspect]
     Indication: PSORIASIS
     Route: 058
     Dates: start: 20130327
  2. CANDESARTAN [Concomitant]
  3. PANTOZOL /01263204/ [Concomitant]
  4. TOREM /01036502/ [Concomitant]
  5. OXAZEPAM [Concomitant]
  6. MOXONIDIN [Concomitant]
  7. MAGNETRANS /01486820/ [Concomitant]
     Route: 058

REACTIONS (3)
  - Erysipelas [Not Recovered/Not Resolved]
  - Peripheral swelling [Not Recovered/Not Resolved]
  - Erythema [Not Recovered/Not Resolved]
